FAERS Safety Report 15315397 (Version 1)
Quarter: 2018Q3

REPORT INFORMATION
  Report Type: Spontaneous
  Country: US (occurrence: US)
  Receive Date: 20180824
  Receipt Date: 20180824
  Transmission Date: 20181010
  Serious: No
  Sender: FDA-Public Use
  Company Number: US-SA-2018SA234356

PATIENT
  Age: 64 Year
  Sex: Female

DRUGS (17)
  1. MONTELUKAST [Concomitant]
     Active Substance: MONTELUKAST SODIUM
  2. TACROLIMUS. [Concomitant]
     Active Substance: TACROLIMUS
  3. TRIAMCINOLON [TRIAMCINOLONE] [Concomitant]
  4. VALTREX [Concomitant]
     Active Substance: VALACYCLOVIR HYDROCHLORIDE
  5. DUPIXENT [Suspect]
     Active Substance: DUPILUMAB
     Dosage: 600 MG, 1X
     Route: 058
     Dates: start: 20180724, end: 20180724
  6. ASPIRIN. [Concomitant]
     Active Substance: ASPIRIN
  7. LOSARTAN POTASSSIUM [Concomitant]
  8. ZYRTEC [Concomitant]
     Active Substance: CETIRIZINE HYDROCHLORIDE
  9. DUPIXENT [Suspect]
     Active Substance: DUPILUMAB
     Dosage: UNK
     Route: 058
     Dates: start: 2018
  10. PRAVASTATIN. [Concomitant]
     Active Substance: PRAVASTATIN
  11. PROTOPIC [Concomitant]
     Active Substance: TACROLIMUS
  12. ALLEGRA [Concomitant]
     Active Substance: FEXOFENADINE HYDROCHLORIDE
  13. CENTRUM JR [MINERALS NOS;VITAMINS NOS] [Concomitant]
  14. HYDROXYZINE [Concomitant]
     Active Substance: HYDROXYZINE HYDROCHLORIDE
  15. ATORVASTATIN [Concomitant]
     Active Substance: ATORVASTATIN
  16. METAMUCIL [PLANTAGO OVATA] [Concomitant]
  17. DESONIDE. [Concomitant]
     Active Substance: DESONIDE

REACTIONS (3)
  - Dermatitis atopic [Not Recovered/Not Resolved]
  - Injection site nodule [Not Recovered/Not Resolved]
  - Rash [Not Recovered/Not Resolved]

NARRATIVE: CASE EVENT DATE: 20180811
